FAERS Safety Report 20091300 (Version 2)
Quarter: 2022Q1

REPORT INFORMATION
  Report Type: Other
  Country: JP (occurrence: None)
  Receive Date: 20211119
  Receipt Date: 20220127
  Transmission Date: 20220423
  Serious: Yes (Other)
  Sender: FDA-Public Use
  Company Number: JP-ROCHE-2958869

PATIENT

DRUGS (6)
  1. BALOXAVIR MARBOXIL [Suspect]
     Active Substance: BALOXAVIR MARBOXIL
     Indication: Influenza
     Route: 065
  2. OSELTAMIVIR [Suspect]
     Active Substance: OSELTAMIVIR
     Indication: Influenza
     Route: 065
  3. ACETAMINOPHEN [Suspect]
     Active Substance: ACETAMINOPHEN
     Indication: Influenza
     Route: 065
  4. PERAMIVIR [Suspect]
     Active Substance: PERAMIVIR
     Indication: Influenza
     Route: 065
  5. LANINAMIVIR [Suspect]
     Active Substance: LANINAMIVIR
     Indication: Influenza
     Route: 065
  6. ZANAMIVIR [Suspect]
     Active Substance: ZANAMIVIR
     Indication: Influenza
     Route: 065

REACTIONS (10)
  - Melaena [Unknown]
  - Haematemesis [Unknown]
  - Haemarthrosis [Unknown]
  - Epistaxis [Unknown]
  - Mouth haemorrhage [Unknown]
  - Haemorrhage subcutaneous [Unknown]
  - Haemoptysis [Unknown]
  - Haematochezia [Unknown]
  - Haematuria [Unknown]
  - Genital haemorrhage [Unknown]
